FAERS Safety Report 7501977-8 (Version None)
Quarter: 2011Q2

REPORT INFORMATION
  Report Type: 
  Country: None (occurrence: None)
  Receive Date: 20110525
  Receipt Date: 20110513
  Transmission Date: 20111010
  Serious: Yes (Hospitalization)
  Sender: FDA-Public Use
  Company Number: JP-ELI_LILLY_AND_COMPANY-JP201105005820

PATIENT
  Age: 75 Year
  Sex: Male

DRUGS (2)
  1. FORTEO [Suspect]
  2. ENBREL [Concomitant]
     Indication: MUSCULOSKELETAL PAIN

REACTIONS (3)
  - SPINAL COMPRESSION FRACTURE [None]
  - BLISTER [None]
  - ACNE [None]
